FAERS Safety Report 5384690-5 (Version None)
Quarter: 2007Q3

REPORT INFORMATION
  Report Type: 
  Country: None (occurrence: None)
  Receive Date: 20070711
  Receipt Date: 20070702
  Transmission Date: 20080115
  Serious: Yes (Hospitalization, Other)
  Sender: FDA-Public Use
  Company Number: PL-PFIZER INC-2007039198

PATIENT
  Sex: Male
  Weight: 83 kg

DRUGS (2)
  1. SU-011,248 [Suspect]
     Indication: RENAL CANCER METASTATIC
     Route: 048
  2. ACARD [Concomitant]
     Route: 048

REACTIONS (1)
  - RENAL FAILURE [None]
